FAERS Safety Report 19812536 (Version 5)
Quarter: 2023Q1

REPORT INFORMATION
  Report Type: Spontaneous
  Country: CA (occurrence: CA)
  Receive Date: 20210910
  Receipt Date: 20230315
  Transmission Date: 20230417
  Serious: Yes (Hospitalization, Other)
  Sender: FDA-Public Use
  Company Number: CA-CELLTRION INC.-2021CA012302

PATIENT

DRUGS (7)
  1. INFLECTRA [Suspect]
     Active Substance: INFLIXIMAB-DYYB
     Indication: Neurosarcoidosis
     Dosage: 400 MG, Q 0, 2, 6 WEEK DOSE, THEN EVERY 6 WEEKS
     Route: 042
     Dates: start: 20210713
  2. INFLECTRA [Suspect]
     Active Substance: INFLIXIMAB-DYYB
     Dosage: 400 MG, Q 0, 2, 6 WEEK DOSE, THEN EVERY 6 WEEKS
     Route: 042
     Dates: start: 20210803
  3. INFLECTRA [Suspect]
     Active Substance: INFLIXIMAB-DYYB
     Dosage: 400 MG, Q 0, 2, 6 WEEK DOSE, THEN EVERY 6 WEEKS
     Route: 042
     Dates: start: 20210831
  4. METHOTREXATE SODIUM [Concomitant]
     Active Substance: METHOTREXATE SODIUM
     Indication: Neurosarcoidosis
     Dosage: 25 MG, DAILY
     Route: 048
     Dates: start: 202106
  5. METHOTREXATE SODIUM [Concomitant]
     Active Substance: METHOTREXATE SODIUM
     Dosage: 25 MG, WEEKLY
     Route: 048
     Dates: start: 202106
  6. PREDNISONE [Concomitant]
     Active Substance: PREDNISONE
     Indication: Neurosarcoidosis
     Dosage: TAPERING DOSE. 60 MG, DAILY
     Route: 048
     Dates: start: 202103
  7. HYDROMORPHONE [Concomitant]
     Active Substance: HYDROMORPHONE
     Dosage: 9 MG, AS NEEDED
     Route: 048

REACTIONS (7)
  - Loss of consciousness [Unknown]
  - Syncope [Unknown]
  - Seizure [Unknown]
  - Condition aggravated [Not Recovered/Not Resolved]
  - Off label use [Unknown]
  - Weight increased [Unknown]
  - Therapeutic response unexpected [Unknown]

NARRATIVE: CASE EVENT DATE: 20210101
